FAERS Safety Report 7875367-2 (Version None)
Quarter: 2011Q4

REPORT INFORMATION
  Report Type: 
  Country: None (occurrence: None)
  Receive Date: 20111031
  Receipt Date: 20111021
  Transmission Date: 20120403
  Serious: Yes (Hospitalization, Other)
  Sender: FDA-Public Use
  Company Number: JP-GLAXOSMITHKLINE-B0722990A

PATIENT
  Sex: Female
  Weight: 54 kg

DRUGS (8)
  1. FOLIC ACID [Concomitant]
     Indication: ANAEMIA
     Dosage: 15MG PER DAY
     Route: 048
     Dates: start: 20110409, end: 20110519
  2. FERRICON [Concomitant]
     Indication: ANAEMIA
     Route: 042
     Dates: start: 20110409, end: 20110517
  3. RITODRINE HYDROCHLORIDE [Concomitant]
     Indication: THREATENED LABOUR
     Route: 042
     Dates: start: 20110506, end: 20110515
  4. ARIXTRA [Suspect]
     Indication: THROMBOSIS PROPHYLAXIS
     Dosage: 2.5MG PER DAY
     Route: 058
     Dates: start: 20110516, end: 20110518
  5. BETAMETHASONE [Concomitant]
  6. MECOBALAMIN [Concomitant]
     Indication: VITAMIN B12 DEFICIENCY
     Dosage: 1500MCG PER DAY
     Route: 048
     Dates: start: 20110409, end: 20110519
  7. MAGNESIUM SULFATE [Concomitant]
     Indication: CONSTIPATION
     Route: 048
     Dates: start: 20110507, end: 20110519
  8. MAGNESIUM SULPHATE + GLUCOSE [Concomitant]
     Route: 042

REACTIONS (9)
  - PELVIC VENOUS THROMBOSIS [None]
  - HAEMORRHAGIC DIATHESIS [None]
  - DISSEMINATED INTRAVASCULAR COAGULATION [None]
  - HAEMORRHAGIC ASCITES [None]
  - ANAEMIA [None]
  - DEEP VEIN THROMBOSIS [None]
  - FLUID RETENTION [None]
  - CARDIOVASCULAR DISORDER [None]
  - HAEMATOMA [None]
